FAERS Safety Report 4562840-8 (Version None)
Quarter: 2005Q1

REPORT INFORMATION
  Report Type: 
  Country: None (occurrence: None)
  Receive Date: 20050127
  Receipt Date: 20050120
  Transmission Date: 20050727
  Serious: Yes (Other)
  Sender: FDA-Public Use
  Company Number: US-AMGEN-US109040

PATIENT
  Sex: Male
  Weight: 75.4 kg

DRUGS (5)
  1. PROCRIT [Suspect]
     Indication: MYELODYSPLASTIC SYNDROME
     Route: 058
     Dates: start: 20040701
  2. INSULIN [Concomitant]
  3. LANTUS [Concomitant]
  4. EFFEXOR [Concomitant]
  5. IRON DEXTRAN [Concomitant]

REACTIONS (1)
  - APLASIA PURE RED CELL [None]
